FAERS Safety Report 6490905-2 (Version None)
Quarter: 2009Q4

REPORT INFORMATION
  Report Type: 
  Country: None (occurrence: None)
  Receive Date: 20091211
  Receipt Date: 20091203
  Transmission Date: 20100525
  Serious: Yes (Death, Other)
  Sender: FDA-Public Use
  Company Number: GB-WATSON-2009-10384

PATIENT

DRUGS (5)
  1. SERTRALINE HYDROCHLORIDE [Suspect]
     Indication: DEPRESSION
     Dosage: 50 MG, UNK
     Route: 065
  2. BACLOFEN (WATSON LABORATORIES) [Suspect]
     Indication: DRUG USE FOR UNKNOWN INDICATION
     Dosage: 10 MG, 2/1 DAYS
     Route: 065
  3. AMANTADINE [Suspect]
     Indication: PARKINSON'S DISEASE
     Dosage: 200 MG, 2 /1 DAYS
  4. AMANTADINE [Suspect]
     Dosage: 100 MG, D1 /1 DAYS
  5. MADOPAR                            /00349201/ [Suspect]
     Indication: PARKINSON'S DISEASE
     Dosage: 1 DF, 2 /1 DAYS

REACTIONS (7)
  - CEREBROVASCULAR ACCIDENT [None]
  - CIRCULATORY COLLAPSE [None]
  - DEPRESSION [None]
  - HICCUPS [None]
  - HYPONATRAEMIA [None]
  - INSOMNIA [None]
  - ORTHOSTATIC HYPOTENSION [None]
